FAERS Safety Report 21479162 (Version 1)
Quarter: 2022Q4

REPORT INFORMATION
  Report Type: Spontaneous
  Country: US (occurrence: US)
  Receive Date: 20221019
  Receipt Date: 20221019
  Transmission Date: 20230112
  Serious: No
  Sender: FDA-Public Use
  Company Number: US-ALLERGAN-2144312US

PATIENT
  Age: 72 Year
  Sex: Male

DRUGS (11)
  1. ALPHAGAN P [Suspect]
     Active Substance: BRIMONIDINE TARTRATE
     Indication: Glaucoma
     Dosage: 2 GTT, QD
     Dates: start: 20211208, end: 20211223
  2. TESTOSTERON [TESTOSTERONE] [Concomitant]
     Indication: Blood testosterone decreased
     Dosage: 100 MG, Q WEEK
  3. OXYCONTIN [Concomitant]
     Active Substance: OXYCODONE HYDROCHLORIDE
     Indication: Compartment syndrome
  4. TIMOLOL MALEATE [Concomitant]
     Active Substance: TIMOLOL MALEATE
     Indication: Glaucoma
     Dosage: UNK UNK, BID
  5. PREDNISOLONE ACETATE [Concomitant]
     Active Substance: PREDNISOLONE ACETATE
     Indication: Glaucoma
     Dosage: UNK UNK, BID
  6. RESTASIS [Concomitant]
     Active Substance: CYCLOSPORINE
     Indication: Dry eye
     Dosage: BOTH EYES BID
  7. RESTASIS [Concomitant]
     Active Substance: CYCLOSPORINE
     Indication: Transplant
  8. RESTASIS [Concomitant]
     Active Substance: CYCLOSPORINE
     Indication: Eye pain
  9. OFLOXACIN [Concomitant]
     Active Substance: OFLOXACIN
     Indication: Corrective lens user
     Dosage: UNK UNK, QID
  10. ATROPINE [Concomitant]
     Active Substance: ATROPINE
     Indication: Glaucoma
  11. LATANOPROST [Concomitant]
     Active Substance: LATANOPROST
     Indication: Glaucoma

REACTIONS (2)
  - Delusion [Recovered/Resolved]
  - Hallucination [Recovered/Resolved]

NARRATIVE: CASE EVENT DATE: 20211213
